FAERS Safety Report 5611300-1 (Version None)
Quarter: 2008Q1

REPORT INFORMATION
  Report Type: 
  Country: None (occurrence: None)
  Receive Date: 20080201
  Receipt Date: 20080122
  Transmission Date: 20080703
  Serious: Yes (Other)
  Sender: FDA-Public Use
  Company Number: IE-PFIZER INC-2007100393

PATIENT
  Sex: Female

DRUGS (3)
  1. LYRICA [Suspect]
     Indication: NEURALGIA
     Route: 048
     Dates: start: 20071124, end: 20071127
  2. ZOLPIDEM TARTRATE [Concomitant]
     Route: 048
  3. XYZAL [Concomitant]
     Route: 048

REACTIONS (7)
  - DIZZINESS [None]
  - EYE PAIN [None]
  - HYPOAESTHESIA FACIAL [None]
  - MALAISE [None]
  - MYASTHENIA GRAVIS [None]
  - SENSATION OF HEAVINESS [None]
  - SOMNOLENCE [None]
